FAERS Safety Report 8096641-3 (Version None)
Quarter: 2012Q1

REPORT INFORMATION
  Report Type: 
  Country: None (occurrence: None)
  Receive Date: 20120129
  Receipt Date: 20111201
  Transmission Date: 20120608
  Serious: No
  Sender: FDA-Public Use
  Company Number: US-ABBOTT-11P-163-0880101-00

PATIENT
  Age: 55 Year
  Sex: Female

DRUGS (7)
  1. BENADRYL [Concomitant]
     Indication: HYPERSENSITIVITY
  2. DOVONEX [Concomitant]
     Indication: PSORIASIS
  3. HUMIRA [Suspect]
     Indication: PSORIASIS
     Dates: start: 20111004
  4. IBUPROFEN [Concomitant]
     Indication: PAIN
  5. CREAMS [Concomitant]
     Indication: PSORIASIS
  6. HYDROCHLOROTHIAZIDE [Concomitant]
     Indication: HYPERTENSION
  7. CELEBREX [Concomitant]
     Indication: OSTEOARTHRITIS

REACTIONS (3)
  - ACCIDENTAL EXPOSURE [None]
  - WRONG TECHNIQUE IN DRUG USAGE PROCESS [None]
  - EYE IRRITATION [None]
